FAERS Safety Report 8427874-1 (Version None)
Quarter: 2012Q2

REPORT INFORMATION
  Report Type: 
  Country: None (occurrence: None)
  Receive Date: 20120611
  Receipt Date: 20120606
  Transmission Date: 20120825
  Serious: Yes (Other)
  Sender: FDA-Public Use
  Company Number: US-ROCHE-1056417

PATIENT
  Sex: Female
  Weight: 69.099 kg

DRUGS (1)
  1. ZELBORAF [Suspect]
     Indication: METASTATIC MALIGNANT MELANOMA
     Route: 048
     Dates: start: 20120315

REACTIONS (8)
  - CONSTIPATION [None]
  - NEUTROPENIA [None]
  - MASS [None]
  - NAUSEA [None]
  - VOMITING [None]
  - FATIGUE [None]
  - ALOPECIA [None]
  - RASH [None]
